FAERS Safety Report 10202616 (Version 1)
Quarter: 2014Q2

REPORT INFORMATION
  Report Type: Spontaneous
  Country: DK (occurrence: DK)
  Receive Date: 20140528
  Receipt Date: 20140528
  Transmission Date: 20141212
  Serious: Yes (Hospitalization)
  Sender: FDA-Public Use
  Company Number: DK-ACTAVIS-2014-10860

PATIENT
  Age: 53 Year
  Sex: Female
  Weight: 48 kg

DRUGS (3)
  1. EPIRUBICIN ACTAVIS [Suspect]
     Indication: BREAST CANCER
     Dosage: 80 MG, UNKNOWN
     Route: 050
     Dates: start: 20140411, end: 20140411
  2. SENDOXAN [Suspect]
     Indication: BREAST CANCER
     Dosage: 780 MG, UNKNOWN
     Route: 050
     Dates: start: 20140411, end: 20140411
  3. TRUXAL                             /00012102/ [Concomitant]
     Indication: DEPRESSION
     Dosage: UNK
     Route: 065

REACTIONS (6)
  - Infusion site swelling [Recovering/Resolving]
  - Infusion site erythema [Recovering/Resolving]
  - Infusion related reaction [Recovered/Resolved]
  - Infusion site warmth [Recovering/Resolving]
  - Extravasation [Recovering/Resolving]
  - Drug administration error [Recovered/Resolved]
